FAERS Safety Report 17171005 (Version 1)
Quarter: 2019Q4

REPORT INFORMATION
  Report Type: Spontaneous
  Country: US (occurrence: US)
  Receive Date: 20191218
  Receipt Date: 20191218
  Transmission Date: 20200122
  Serious: Yes (Hospitalization, Other)
  Sender: FDA-Public Use
  Company Number: US-SA-2019SA348328

PATIENT
  Age: 73 Year
  Sex: Female
  Weight: 106.5 kg

DRUGS (33)
  1. LOSARTAN. [Concomitant]
     Active Substance: LOSARTAN
     Dosage: 50 MG, UNK
     Route: 065
  2. HUMALOG [Concomitant]
     Active Substance: INSULIN LISPRO
     Dosage: 18 UNIT UNK
     Route: 065
     Dates: start: 20190928
  3. TRESIBA [Concomitant]
     Active Substance: INSULIN DEGLUDEC
     Dosage: 90 UNITS, UNK
     Route: 065
     Dates: start: 20191105, end: 20191106
  4. LEVOTHYROXINE. [Concomitant]
     Active Substance: LEVOTHYROXINE
     Dosage: 0.050 MG, UNK
     Route: 065
  5. ASPIRINE [Suspect]
     Active Substance: ASPIRIN
     Dosage: 100 MG, QD
     Route: 048
     Dates: start: 20190929, end: 20191017
  6. FLUOXETINE [Concomitant]
     Active Substance: FLUOXETINE HYDROCHLORIDE
     Indication: ADVERSE EVENT
     Dosage: 20 MG, UNK
     Route: 065
     Dates: start: 20191003
  7. ATORVASTATIN [Concomitant]
     Active Substance: ATORVASTATIN
     Dosage: 80 MG, UNK
     Route: 065
     Dates: start: 20190927, end: 20190927
  8. TRESIBA [Concomitant]
     Active Substance: INSULIN DEGLUDEC
     Dosage: 70 UNITS
     Route: 065
     Dates: start: 20191107
  9. ASPIRINE [Suspect]
     Active Substance: ASPIRIN
     Dosage: 100 MG
     Dates: start: 20190927
  10. LEVOTHYROXINE. [Concomitant]
     Active Substance: LEVOTHYROXINE
     Dosage: 0.050 MG, UNK
     Route: 065
  11. METFORMIN [Concomitant]
     Active Substance: METFORMIN HYDROCHLORIDE
     Dosage: 1000 MG
     Route: 065
  12. METFORMIN [Concomitant]
     Active Substance: METFORMIN HYDROCHLORIDE
     Dosage: 1000 MG
     Route: 065
  13. ACTOS [Concomitant]
     Active Substance: PIOGLITAZONE HYDROCHLORIDE
     Dosage: 30 MG, UNK
     Route: 065
  14. PNEUMOCOCCAL 13 VALENT VACCINE [Concomitant]
     Active Substance: PNEUMOCOCCAL 13-VALENT CONJUGATE VACCINE
     Indication: PROPHYLAXIS
     Dosage: UNK
     Route: 030
     Dates: start: 20191006
  15. PLAVIX [Suspect]
     Active Substance: CLOPIDOGREL BISULFATE
     Dosage: 75 MG, QD
     Route: 048
     Dates: start: 20190929, end: 20191017
  16. ASPIRINE [Suspect]
     Active Substance: ASPIRIN
     Dosage: 100 MG, QD
     Route: 048
     Dates: start: 20190928, end: 20190928
  17. TRESIBA [Concomitant]
     Active Substance: INSULIN DEGLUDEC
     Dosage: 100 UNIT
     Route: 065
     Dates: start: 20191010, end: 20191104
  18. PRAVASTATIN. [Concomitant]
     Active Substance: PRAVASTATIN
     Dosage: 40 MG, UNK
     Route: 065
  19. ACETAMINOPHEN. [Concomitant]
     Active Substance: ACETAMINOPHEN
     Dosage: 3600 MG, UNK
     Route: 065
     Dates: start: 20191004
  20. INFLUENZA VACCINE [Concomitant]
     Active Substance: INFLUENZA VIRUS VACCINE
     Indication: PROPHYLAXIS
     Dosage: UNK
     Route: 030
     Dates: start: 20191005
  21. PLAVIX [Suspect]
     Active Substance: CLOPIDOGREL BISULFATE
     Dosage: 75 MG, QD
     Route: 048
     Dates: start: 20191018, end: 20191018
  22. ASPIRINE [Suspect]
     Active Substance: ASPIRIN
     Dosage: 100 MG, QD
     Route: 048
     Dates: start: 20191018, end: 20191018
  23. GLIPIZIDE XL [Concomitant]
     Active Substance: GLIPIZIDE
     Dosage: 10 MG, UNK
     Route: 065
  24. LOSARTAN. [Concomitant]
     Active Substance: LOSARTAN
     Dosage: 50 MG, UNK
     Route: 065
  25. VICTOZA [Concomitant]
     Active Substance: LIRAGLUTIDE
     Dosage: 0.60 MG, UNK
     Route: 065
     Dates: start: 20190929
  26. HUMALOG [Concomitant]
     Active Substance: INSULIN LISPRO
     Dosage: 18 UNIT UNK
     Route: 065
     Dates: start: 20190928
  27. ATORVASTATIN [Concomitant]
     Active Substance: ATORVASTATIN
     Dosage: 80 MG, UNK
     Route: 065
     Dates: start: 20190927, end: 20190927
  28. NORCO [Concomitant]
     Active Substance: ACETAMINOPHEN\HYDROCODONE BITARTRATE
     Dosage: 4 UNK
     Route: 065
     Dates: start: 20191031
  29. PLAVIX [Suspect]
     Active Substance: CLOPIDOGREL BISULFATE
     Dosage: 75 MG, QD
     Route: 048
     Dates: start: 20190928, end: 20190928
  30. GLIPIZIDE XL [Concomitant]
     Active Substance: GLIPIZIDE
     Dosage: 10 MG, UNK
     Route: 065
  31. ACTOS [Concomitant]
     Active Substance: PIOGLITAZONE HYDROCHLORIDE
     Dosage: 30 MG, UNK
     Route: 065
  32. INSULIN GLARGINE [Concomitant]
     Active Substance: INSULIN GLARGINE
     Dosage: 80 UNITS, UNK
     Route: 065
     Dates: start: 20190928, end: 20190929
  33. ISOVUE [Concomitant]
     Active Substance: IOPAMIDOL
     Dosage: 120 UNK, UNK
     Route: 065
     Dates: start: 20190927, end: 20190927

REACTIONS (1)
  - Syncope [Recovered/Resolved with Sequelae]

NARRATIVE: CASE EVENT DATE: 20191126
